FAERS Safety Report 22694314 (Version 3)
Quarter: 2023Q4

REPORT INFORMATION
  Report Type: Report from Study
  Country: ES (occurrence: ES)
  Receive Date: 20230711
  Receipt Date: 20231130
  Transmission Date: 20240109
  Serious: Yes (Death, Hospitalization)
  Sender: FDA-Public Use
  Company Number: ES-AMGEN-ESPSP2023118832

PATIENT
  Age: 73 Year
  Sex: Male
  Weight: 77.9 kg

DRUGS (3)
  1. BEVACIZUMAB [Suspect]
     Active Substance: BEVACIZUMAB
     Indication: Hepatocellular carcinoma
     Dosage: 1212 MILLIGRAM
     Route: 065
     Dates: start: 20230307
  2. ATEZOLIZUMAB [Suspect]
     Active Substance: ATEZOLIZUMAB
     Indication: Hepatocellular carcinoma
     Dosage: 1200 MILLIGRAM, Q3WK/ THE PATIENT RECEIVED THE MOST RECENT DOSE OF ATEZOLIZUMAB (1200 MG) PRIOR TO T
     Route: 042
     Dates: start: 20230307
  3. LEVOFLOXACIN [Concomitant]
     Active Substance: LEVOFLOXACIN
     Dosage: UNK, TID
     Dates: start: 20230303

REACTIONS (2)
  - Arthritis bacterial [Fatal]
  - Arthralgia [Not Recovered/Not Resolved]

NARRATIVE: CASE EVENT DATE: 20230308
